FAERS Safety Report 10176821 (Version 1)
Quarter: 2014Q2

REPORT INFORMATION
  Report Type: Spontaneous
  Country: US (occurrence: US)
  Receive Date: 20140516
  Receipt Date: 20140516
  Transmission Date: 20141212
  Serious: Yes (Other)
  Sender: FDA-Public Use
  Company Number: US-MYLANLABS-2014S1010781

PATIENT
  Sex: Female

DRUGS (4)
  1. FENTANYL TRANSDERMAL SYSTEM [Suspect]
     Indication: BACK PAIN
     Dosage: CHANGED EVERY 48 HOURS
     Route: 062
     Dates: start: 2011
  2. CITALOPRAM HYDROBROMIDE TABLETS [Suspect]
     Route: 048
  3. HORMONE THERAPY [Concomitant]
     Indication: HORMONE REPLACEMENT THERAPY
  4. MARIJUANA [Concomitant]

REACTIONS (9)
  - Drug effect decreased [Not Recovered/Not Resolved]
  - Drug dependence [Not Recovered/Not Resolved]
  - Sudden onset of sleep [Not Recovered/Not Resolved]
  - Back pain [Not Recovered/Not Resolved]
  - Activities of daily living impaired [Not Recovered/Not Resolved]
  - Feeling abnormal [Recovered/Resolved]
  - Paranoia [Not Recovered/Not Resolved]
  - Poor quality sleep [Not Recovered/Not Resolved]
  - Drug interaction [Recovered/Resolved]
